FAERS Safety Report 15701616 (Version 2)
Quarter: 2018Q4

REPORT INFORMATION
  Report Type: Spontaneous
  Country: CN (occurrence: CN)
  Receive Date: 20181208
  Receipt Date: 20181217
  Transmission Date: 20190205
  Serious: Yes (Other)
  Sender: FDA-Public Use
  Company Number: CN-ROCHE-2226750

PATIENT
  Age: 51 Year
  Sex: Female

DRUGS (3)
  1. DOCETAXEL. [Suspect]
     Active Substance: DOCETAXEL
     Indication: INVASIVE DUCTAL BREAST CARCINOMA
     Route: 065
     Dates: start: 201502, end: 201506
  2. PACLITAXEL ALBUMIN [Suspect]
     Active Substance: PACLITAXEL
     Indication: INVASIVE DUCTAL BREAST CARCINOMA
     Route: 065
     Dates: start: 201809
  3. HERCEPTIN [Suspect]
     Active Substance: TRASTUZUMAB
     Indication: INVASIVE DUCTAL BREAST CARCINOMA
     Route: 065
     Dates: start: 201502, end: 201506

REACTIONS (11)
  - Interstitial lung disease [Unknown]
  - Gastrointestinal disorder [Unknown]
  - Bone marrow failure [Unknown]
  - Rash [Unknown]
  - Stomatitis [Unknown]
  - Palpitations [Unknown]
  - Diarrhoea [Unknown]
  - Asthenia [Unknown]
  - Alopecia [Unknown]
  - Hepatic function abnormal [Unknown]
  - Palmar-plantar erythrodysaesthesia syndrome [Unknown]

NARRATIVE: CASE EVENT DATE: 201608
